FAERS Safety Report 6907249-4 (Version None)
Quarter: 2010Q3

REPORT INFORMATION
  Report Type: 
  Country: None (occurrence: None)
  Receive Date: 20100802
  Receipt Date: 20100722
  Transmission Date: 20110219
  Serious: Yes (Hospitalization)
  Sender: FDA-Public Use
  Company Number: 2010070052

PATIENT
  Age: 36 Year
  Sex: Male
  Weight: 89 kg

DRUGS (1)
  1. PENICILLAMINE [Suspect]
     Indication: HEPATO-LENTICULAR DEGENERATION
     Dosage: (600 MG,PER DAY)

REACTIONS (10)
  - ACUTE HEPATIC FAILURE [None]
  - BLOOD ALBUMIN DECREASED [None]
  - DEPRESSION [None]
  - GASTROINTESTINAL HAEMORRHAGE [None]
  - HAEMOGLOBIN DECREASED [None]
  - HYPOPROTHROMBINAEMIA [None]
  - INCORRECT DOSE ADMINISTERED [None]
  - IRON DEFICIENCY [None]
  - LIVER INJURY [None]
  - TYPE 1 DIABETES MELLITUS [None]
